FAERS Safety Report 12051066 (Version 1)
Quarter: 2016Q1

REPORT INFORMATION
  Report Type: Report from Study
  Country: US (occurrence: US)
  Receive Date: 20160208
  Receipt Date: 20160208
  Transmission Date: 20160526
  Serious: Yes (Hospitalization)
  Sender: FDA-Public Use
  Company Number: US-ACTELION-A-NJ2015-121410

PATIENT
  Age: 63 Year
  Sex: Male

DRUGS (1)
  1. VELETRI [Suspect]
     Active Substance: EPOPROSTENOL
     Indication: PULMONARY ARTERIAL HYPERTENSION
     Dosage: 5.5 NG/KG, PER MIN
     Route: 042
     Dates: start: 20150717

REACTIONS (10)
  - Erythema [Unknown]
  - Fatigue [Unknown]
  - Decreased appetite [Unknown]
  - Administration site cellulitis [Unknown]
  - Weight decreased [Unknown]
  - Arthralgia [Unknown]
  - Ageusia [Unknown]
  - Infection [Unknown]
  - Pain in jaw [Unknown]
  - Vision blurred [Unknown]
